FAERS Safety Report 9210845 (Version 1)
Quarter: 2013Q2

REPORT INFORMATION
  Report Type: Spontaneous
  Country: PL (occurrence: PL)
  Receive Date: 20130404
  Receipt Date: 20130404
  Transmission Date: 20140414
  Serious: Yes (Hospitalization)
  Sender: FDA-Public Use
  Company Number: PL-ASTRAZENECA-2013SE20634

PATIENT
  Age: 68 Year
  Sex: Male

DRUGS (3)
  1. ZOLADEX LA [Suspect]
     Indication: PROSTATE CANCER
     Route: 058
     Dates: start: 201210
  2. FLUTAMIDE [Suspect]
     Route: 065
     Dates: start: 201106, end: 201110
  3. FLUTAMIDE [Suspect]
     Route: 065
     Dates: start: 201210

REACTIONS (3)
  - Anaemia [Unknown]
  - Malignant neoplasm progression [Unknown]
  - Metastases to bone [Unknown]
